FAERS Safety Report 22081962 (Version 2)
Quarter: 2024Q1

REPORT INFORMATION
  Report Type: Spontaneous
  Country: ES (occurrence: ES)
  Receive Date: 20230310
  Receipt Date: 20240326
  Transmission Date: 20240409
  Serious: Yes (Other)
  Sender: FDA-Public Use
  Company Number: ES-NOVOPROD-1034304

PATIENT
  Age: 3 Year
  Sex: Female

DRUGS (3)
  1. NOVOSEVEN [Suspect]
     Active Substance: COAGULATION FACTOR VIIA RECOMBINANT HUMAN
     Indication: Factor VII deficiency
     Dosage: UNK
     Route: 042
  2. NOVOSEVEN [Suspect]
     Active Substance: COAGULATION FACTOR VIIA RECOMBINANT HUMAN
     Dosage: DOSE INCREASED (UNK)
     Route: 042
  3. NOVOSEVEN [Suspect]
     Active Substance: COAGULATION FACTOR VIIA RECOMBINANT HUMAN
     Indication: Prophylaxis
     Dosage: 50 ?G /KG/48 H
     Route: 042

REACTIONS (9)
  - Haemorrhage intracranial [Unknown]
  - Tonsillar haemorrhage [Unknown]
  - Muscle haemorrhage [Unknown]
  - Catheter site thrombosis [Unknown]
  - Factor VII inhibition [Recovered/Resolved]
  - Factor VII inhibition [Unknown]
  - Mucocutaneous haemorrhage [Unknown]
  - Thrombosis [Unknown]
  - Off label use [Unknown]
